FAERS Safety Report 6396918-3 (Version None)
Quarter: 2009Q4

REPORT INFORMATION
  Report Type: 
  Country: None (occurrence: None)
  Receive Date: 20091012
  Receipt Date: 20090930
  Transmission Date: 20100525
  Serious: Yes (Hospitalization, Other)
  Sender: FDA-Public Use
  Company Number: FR-BAYER-200914044GPV

PATIENT
  Sex: Female

DRUGS (1)
  1. MIRENA [Suspect]
     Indication: DRUG USE FOR UNKNOWN INDICATION
     Route: 015

REACTIONS (5)
  - ABORTION INFECTED [None]
  - AMENORRHOEA [None]
  - CHORIOAMNIONITIS [None]
  - MENSTRUATION IRREGULAR [None]
  - PREGNANCY WITH CONTRACEPTIVE DEVICE [None]
